FAERS Safety Report 6387680-9 (Version None)
Quarter: 2009Q4

REPORT INFORMATION
  Report Type: 
  Country: None (occurrence: None)
  Receive Date: 20091005
  Receipt Date: 20090924
  Transmission Date: 20100525
  Serious: Yes (Hospitalization)
  Sender: FDA-Public Use
  Company Number: FR-ROCHE-658809

PATIENT
  Sex: Male
  Weight: 56 kg

DRUGS (7)
  1. MYCOPHENOLATE MOFETIL [Suspect]
     Route: 048
     Dates: start: 20080718
  2. INIPOMP [Concomitant]
     Dates: start: 20080718
  3. AMLOR [Concomitant]
     Dates: start: 20080730
  4. FRAXIPARINE [Concomitant]
     Dates: start: 20080808
  5. CORDARONE [Concomitant]
     Dates: start: 20080719
  6. BUMEX [Concomitant]
     Dates: start: 20080719
  7. CIFLOX [Concomitant]
     Dates: start: 20080806

REACTIONS (1)
  - HEPATIC ARTERY STENOSIS [None]
